FAERS Safety Report 21588920 (Version 1)
Quarter: 2022Q4

REPORT INFORMATION
  Report Type: Spontaneous
  Country: CN (occurrence: None)
  Receive Date: 20221114
  Receipt Date: 20221114
  Transmission Date: 20230113
  Serious: Yes (Other)
  Sender: FDA-Public Use
  Company Number: CN-ROCHE-3215497

PATIENT
  Age: 33 Year
  Sex: Male

DRUGS (37)
  1. MABTHERA [Suspect]
     Active Substance: RITUXIMAB
     Indication: Follicular lymphoma
     Dosage: 1 CYCLE
     Route: 065
     Dates: start: 201412
  2. MABTHERA [Suspect]
     Active Substance: RITUXIMAB
     Indication: Non-Hodgkin^s lymphoma
     Dosage: 1 CYCLE
     Route: 065
     Dates: start: 201501
  3. MABTHERA [Suspect]
     Active Substance: RITUXIMAB
     Dosage: 6 CYCLES
     Route: 065
     Dates: start: 201502
  4. MABTHERA [Suspect]
     Active Substance: RITUXIMAB
     Route: 065
     Dates: start: 20150719
  5. MABTHERA [Suspect]
     Active Substance: RITUXIMAB
     Dosage: 1 CYCLES
     Route: 065
     Dates: start: 202101
  6. GAZYVA [Suspect]
     Active Substance: OBINUTUZUMAB
     Indication: Non-Hodgkin^s lymphoma
     Route: 042
     Dates: start: 202109
  7. GAZYVA [Suspect]
     Active Substance: OBINUTUZUMAB
     Indication: Follicular lymphoma
     Dosage: FOUR CYCLES
     Route: 042
     Dates: start: 20210930, end: 202201
  8. GAZYVA [Suspect]
     Active Substance: OBINUTUZUMAB
     Dosage: EVERY 2 MONTHS FOR 3 DOSES AND LAST TREATMENT IN JUL 2022
     Route: 042
     Dates: start: 202207
  9. GLOFITAMAB [Concomitant]
     Active Substance: GLOFITAMAB
     Indication: Non-Hodgkin^s lymphoma
     Dosage: RECEIVED 3 DOSES
     Dates: start: 202209
  10. GLOFITAMAB [Concomitant]
     Active Substance: GLOFITAMAB
     Indication: Follicular lymphoma
  11. CYCLOPHOSPHAMIDE [Concomitant]
     Active Substance: CYCLOPHOSPHAMIDE
     Indication: Non-Hodgkin^s lymphoma
     Dosage: 1 CYCLE
     Dates: start: 201412
  12. CYCLOPHOSPHAMIDE [Concomitant]
     Active Substance: CYCLOPHOSPHAMIDE
     Indication: Follicular lymphoma
     Dosage: 1 CYCLE
     Dates: start: 201501
  13. CYCLOPHOSPHAMIDE [Concomitant]
     Active Substance: CYCLOPHOSPHAMIDE
     Dates: start: 20170801
  14. DOXORUBICIN [Concomitant]
     Active Substance: DOXORUBICIN
     Dosage: 1 CYCLE
     Dates: start: 201412
  15. DOXORUBICIN [Concomitant]
     Active Substance: DOXORUBICIN
     Dosage: 1 CYCLE
     Dates: start: 201501
  16. VINCRISTINE [Concomitant]
     Active Substance: VINCRISTINE
     Indication: Non-Hodgkin^s lymphoma
     Dosage: 1 CYCLE
     Dates: start: 201412
  17. VINCRISTINE [Concomitant]
     Active Substance: VINCRISTINE
     Indication: Follicular lymphoma
     Dosage: 1 CYCLE
     Dates: start: 201501
  18. PREDNISONE [Concomitant]
     Active Substance: PREDNISONE
     Indication: Non-Hodgkin^s lymphoma
     Dosage: 1 CYCLE
     Dates: start: 201412
  19. PREDNISONE [Concomitant]
     Active Substance: PREDNISONE
     Indication: Follicular lymphoma
     Dosage: 1 CYCLE
     Dates: start: 201501
  20. ETOPOSIDE [Concomitant]
     Active Substance: ETOPOSIDE
     Indication: Non-Hodgkin^s lymphoma
     Dosage: 1 CYCLE
     Dates: start: 201501
  21. ETOPOSIDE [Concomitant]
     Active Substance: ETOPOSIDE
     Indication: Follicular lymphoma
     Dosage: SIX CYCLES
     Dates: start: 201502
  22. DEXAMETHASONE [Concomitant]
     Active Substance: DEXAMETHASONE
     Indication: Non-Hodgkin^s lymphoma
     Dosage: SIX CYCLES
     Dates: start: 201502
  23. DEXAMETHASONE [Concomitant]
     Active Substance: DEXAMETHASONE
     Indication: Follicular lymphoma
  24. IFOSFAMIDE [Concomitant]
     Active Substance: IFOSFAMIDE
     Indication: Non-Hodgkin^s lymphoma
     Dosage: SIX CYCLES
     Dates: start: 201502
  25. IFOSFAMIDE [Concomitant]
     Active Substance: IFOSFAMIDE
     Indication: Follicular lymphoma
  26. CISPLATIN [Concomitant]
     Active Substance: CISPLATIN
     Indication: Non-Hodgkin^s lymphoma
     Dosage: SIX CYCLES
     Dates: start: 201502
  27. CISPLATIN [Concomitant]
     Active Substance: CISPLATIN
     Indication: Follicular lymphoma
  28. FLUDARABINE [Concomitant]
     Active Substance: FLUDARABINE PHOSPHATE
     Indication: Non-Hodgkin^s lymphoma
     Dates: start: 20170801
  29. FLUDARABINE [Concomitant]
     Active Substance: FLUDARABINE PHOSPHATE
     Indication: Follicular lymphoma
  30. LENALIDOMIDE [Concomitant]
     Active Substance: LENALIDOMIDE
     Indication: Non-Hodgkin^s lymphoma
     Dosage: 1 CYCLE
     Dates: start: 202101
  31. LENALIDOMIDE [Concomitant]
     Active Substance: LENALIDOMIDE
     Indication: Follicular lymphoma
  32. GEMCITABINE [Concomitant]
     Active Substance: GEMCITABINE
     Indication: Non-Hodgkin^s lymphoma
     Dosage: 2 CYCLES
     Dates: start: 202106
  33. GEMCITABINE [Concomitant]
     Active Substance: GEMCITABINE
     Indication: Follicular lymphoma
  34. OXALIPLATIN [Concomitant]
     Active Substance: OXALIPLATIN
     Indication: Non-Hodgkin^s lymphoma
     Dosage: 2 CYCLES
     Dates: start: 202106
  35. OXALIPLATIN [Concomitant]
     Active Substance: OXALIPLATIN
     Indication: Follicular lymphoma
  36. BENDAMUSTINE [Concomitant]
     Active Substance: BENDAMUSTINE
     Indication: Non-Hodgkin^s lymphoma
     Dosage: 4 CYCLES
     Dates: start: 20210930, end: 202201
  37. BENDAMUSTINE [Concomitant]
     Active Substance: BENDAMUSTINE
     Indication: Follicular lymphoma

REACTIONS (6)
  - Pneumonia [Unknown]
  - Traumatic lung injury [Unknown]
  - Drug resistance [Unknown]
  - Disease progression [Unknown]
  - Drug ineffective [Unknown]
  - Infusion related reaction [Unknown]

NARRATIVE: CASE EVENT DATE: 20170601
